FAERS Safety Report 6809410-6 (Version None)
Quarter: 2010Q2

REPORT INFORMATION
  Report Type: 
  Country: None (occurrence: None)
  Receive Date: 20100630
  Receipt Date: 20100617
  Transmission Date: 20101027
  Serious: Yes (Hospitalization)
  Sender: FDA-Public Use
  Company Number: FR-SANOFI-AVENTIS-2010SA034959

PATIENT
  Age: 17 Year
  Sex: Female

DRUGS (18)
  1. LOVENOX [Suspect]
     Route: 058
     Dates: start: 20100517, end: 20100518
  2. PROPOFOL [Suspect]
     Route: 042
     Dates: start: 20100517, end: 20100517
  3. ATRACURIUM [Suspect]
     Route: 042
     Dates: start: 20100517, end: 20100517
  4. SUFENTA PRESERVATIVE FREE [Suspect]
     Route: 042
     Dates: start: 20100517, end: 20100517
  5. NEURONTIN [Suspect]
     Indication: PREMEDICATION
     Route: 048
     Dates: start: 20100517, end: 20100517
  6. BETADINE [Suspect]
     Route: 003
     Dates: start: 20100516, end: 20100517
  7. NAROPIN [Suspect]
     Route: 050
     Dates: start: 20100517, end: 20100517
  8. DROPERIDOL [Suspect]
     Route: 042
     Dates: start: 20100517, end: 20100517
  9. KETAMINE HCL [Suspect]
     Route: 042
     Dates: start: 20100517, end: 20100517
  10. AUGMENTIN '125' [Suspect]
     Route: 042
     Dates: start: 20100517, end: 20100517
  11. SEVORANE [Suspect]
     Route: 055
     Dates: start: 20100517, end: 20100517
  12. RINGER [Concomitant]
     Route: 042
     Dates: start: 20100517, end: 20100517
  13. DEXTROSE 5% [Concomitant]
     Route: 042
     Dates: start: 20100517
  14. PERFALGAN [Concomitant]
     Route: 042
     Dates: start: 20100517
  15. ACUPAN [Concomitant]
     Route: 042
     Dates: start: 20100517
  16. DOXYLAMINE SUCCINATE [Concomitant]
     Route: 048
  17. DESOGESTREL AND ETHINYL ESTRADIOL [Concomitant]
  18. FLURBIPROFEN [Concomitant]
     Route: 048
     Dates: end: 20100501

REACTIONS (2)
  - HAEMATURIA [None]
  - RENAL FAILURE ACUTE [None]
